FAERS Safety Report 12195434 (Version 3)
Quarter: 2016Q3

REPORT INFORMATION
  Report Type: Spontaneous
  Country: PE (occurrence: PE)
  Receive Date: 20160321
  Receipt Date: 20160812
  Transmission Date: 20161109
  Serious: Yes (Other)
  Sender: FDA-Public Use
  Company Number: PE-PFIZER INC-2016159939

PATIENT
  Age: 84 Year
  Sex: Female

DRUGS (2)
  1. XALATAN [Suspect]
     Active Substance: LATANOPROST
     Dosage: 2 GTT, DAILY ON THE LEFT EYE (1 GTT IN THE MORNING AND 1 DROP IN THE NIGHT)
     Route: 047
  2. XALATAN [Suspect]
     Active Substance: LATANOPROST
     Indication: GLAUCOMA
     Dosage: 4 GTT, DAILY (2 GTT, DAILY ON EACH EYE)
     Route: 047

REACTIONS (2)
  - Product use issue [Unknown]
  - Blindness unilateral [Not Recovered/Not Resolved]
